FAERS Safety Report 5236210-3 (Version None)
Quarter: 2007Q1

REPORT INFORMATION
  Report Type: 
  Country: None (occurrence: None)
  Receive Date: 20061208
  Receipt Date: 20060119
  Transmission Date: 20070707
  Serious: Yes (Other)
  Sender: FDA-Public Use
  Company Number: 2006UW01060

PATIENT
  Age: 63 Year
  Sex: Female
  Weight: 80.739 kg

DRUGS (12)
  1. CRESTOR [Suspect]
     Indication: BLOOD CHOLESTEROL INCREASED
     Dosage: 10 MG BID PO
     Route: 048
     Dates: start: 20050101
  2. CRESTOR [Suspect]
     Indication: BLOOD CHOLESTEROL INCREASED
     Dosage: 10 MG DAILY PO
     Route: 048
  3. SOMA [Concomitant]
  4. VICODIN [Concomitant]
  5. OXYCODONE [Concomitant]
  6. HALCION [Concomitant]
  7. PRILOSEC [Concomitant]
  8. TRAMADOL HCL [Concomitant]
  9. MAGNESIUM [Concomitant]
  10. M.V.I. [Concomitant]
  11. GLUCOSAMINE W/CHONDROITIN [Concomitant]
  12. Q10 [Concomitant]

REACTIONS (2)
  - BONE PAIN [None]
  - PAIN [None]
